FAERS Safety Report 18376599 (Version 2)
Quarter: 2020Q4

REPORT INFORMATION
  Report Type: Spontaneous
  Country: AT (occurrence: AT)
  Receive Date: 20201013
  Receipt Date: 20201016
  Transmission Date: 20210114
  Serious: Yes (Other)
  Sender: FDA-Public Use
  Company Number: AT-JNJFOC-20201001251

PATIENT
  Age: 42 Year
  Sex: Female

DRUGS (3)
  1. TOPIRAMATE. [Suspect]
     Active Substance: TOPIRAMATE
     Indication: PRODUCT USED FOR UNKNOWN INDICATION
     Dosage: UP TO 200 MG
     Route: 065
  2. ASPIRIN                            /00002701/ [Suspect]
     Active Substance: ASPIRIN
     Indication: PRODUCT USED FOR UNKNOWN INDICATION
     Route: 065
  3. ERGOT [Suspect]
     Active Substance: ERGOLOID MESYLATES
     Indication: PRODUCT USED FOR UNKNOWN INDICATION
     Route: 065

REACTIONS (13)
  - Medication overuse headache [Unknown]
  - Headache [Unknown]
  - Anxiety [Unknown]
  - Tension headache [Unknown]
  - Weight increased [Unknown]
  - Depression [Not Recovered/Not Resolved]
  - Major depression [Not Recovered/Not Resolved]
  - Idiopathic intracranial hypertension [Unknown]
  - Migraine [Unknown]
  - Drug ineffective [Unknown]
  - Bed rest [Unknown]
  - Nausea [Unknown]
  - Sleep disorder [Unknown]
